FAERS Safety Report 5124118-3 (Version None)
Quarter: 2006Q4

REPORT INFORMATION
  Report Type: 
  Country: None (occurrence: None)
  Receive Date: 20061010
  Receipt Date: 20060221
  Transmission Date: 20070319
  Serious: No
  Sender: FDA-Public Use
  Company Number: US-BRISTOL-MYERS SQUIBB COMPANY-13289699

PATIENT
  Age: 65 Year
  Sex: Female
  Weight: 91 kg

DRUGS (2)
  1. AVAPRO [Suspect]
     Indication: HYPERTENSION
     Dosage: WAS TAKING 200 MG OR 300 MG ONE TABLET DAILY
     Dates: start: 20050101
  2. DOXAZOSIN [Concomitant]

REACTIONS (1)
  - DYSGEUSIA [None]
